FAERS Safety Report 8401661-2 (Version None)
Quarter: 2012Q2

REPORT INFORMATION
  Report Type: 
  Country: None (occurrence: None)
  Receive Date: 20120601
  Receipt Date: 20120528
  Transmission Date: 20120825
  Serious: Yes (Death)
  Sender: FDA-Public Use
  Company Number: IE-JNJFOC-20120520107

PATIENT
  Sex: Female

DRUGS (9)
  1. ZOCOR [Concomitant]
  2. SERTRALINE HYDROCHLORIDE [Concomitant]
  3. SIMPONI [Suspect]
     Indication: RHEUMATOID ARTHRITIS
     Route: 058
     Dates: start: 20110427
  4. DELTACORTRIL [Concomitant]
  5. FEMARA [Concomitant]
  6. LYRICA [Concomitant]
  7. FUROSEMIDE [Concomitant]
  8. OMEPRAZOLE (PRISOLEC) [Concomitant]
  9. WARFARIN SODIUM [Concomitant]

REACTIONS (1)
  - DEATH [None]
